FAERS Safety Report 8334917-2 (Version None)
Quarter: 2012Q2

REPORT INFORMATION
  Report Type: 
  Country: None (occurrence: None)
  Receive Date: 20120503
  Receipt Date: 20100304
  Transmission Date: 20120825
  Serious: No
  Sender: FDA-Public Use
  Company Number: US-TEVA-2010001315

PATIENT
  Sex: Male
  Weight: 88.53 kg

DRUGS (3)
  1. NUVIGIL [Suspect]
     Indication: NARCOLEPSY
     Route: 048
     Dates: start: 20091001
  2. NUVIGIL [Suspect]
     Route: 048
  3. THYROID TAB [Concomitant]
     Indication: HYPOTHYROIDISM
     Dosage: 60 MILLIGRAM;
     Route: 048
     Dates: start: 20100201

REACTIONS (2)
  - DRUG TOLERANCE [None]
  - PSYCHOMOTOR HYPERACTIVITY [None]
